FAERS Safety Report 8077406-5 (Version None)
Quarter: 2012Q1

REPORT INFORMATION
  Report Type: 
  Country: None (occurrence: None)
  Receive Date: 20120127
  Receipt Date: 20120126
  Transmission Date: 20120608
  Serious: Yes (Death, Hospitalization, Other)
  Sender: FDA-Public Use
  Company Number: PHHY2012NL001976

PATIENT
  Sex: Male

DRUGS (8)
  1. SIMVASTATIN [Concomitant]
  2. ZOMETA [Suspect]
     Indication: PROSTATE CANCER METASTATIC
     Dosage: 4 MG/100 ML ONCE PER 28 DAYS
     Route: 042
     Dates: start: 20111209
  3. ASCAL [Concomitant]
  4. METFORMIN HCL [Concomitant]
  5. AMLODIPINE [Concomitant]
  6. MODALIM [Concomitant]
  7. TAMSULOSIN HCL [Concomitant]
  8. ATENOLOL [Concomitant]

REACTIONS (5)
  - FATIGUE [None]
  - DEATH [None]
  - HAEMOGLOBIN DECREASED [None]
  - URINARY TRACT INFECTION [None]
  - BLOOD URINE PRESENT [None]
